FAERS Safety Report 4512143-2 (Version None)
Quarter: 2004Q4

REPORT INFORMATION
  Report Type: 
  Country: None (occurrence: None)
  Receive Date: 20041123
  Receipt Date: 20041111
  Transmission Date: 20050328
  Serious: Yes (Death)
  Sender: FDA-Public Use
  Company Number: 2004-BP-10875BR

PATIENT
  Age: 85 Year
  Sex: Female

DRUGS (7)
  1. SPIRIVA [Suspect]
     Indication: CHRONIC OBSTRUCTIVE AIRWAYS DISEASE
     Dosage: (18 MCG,) IH
     Route: 055
     Dates: start: 20040601, end: 20040823
  2. AMIODARONA (AMIODARONE) (NR) [Concomitant]
  3. METICORTEN (PREDNISONE) (NR) [Concomitant]
  4. AMINOFILINA (AMINOPLYLLINE) (NR) [Concomitant]
  5. CEBRALAT (CILOSTAZOL) (NR) [Concomitant]
  6. DAONIL (GLIBENCLAMIDE) (NR) [Concomitant]
  7. GLIFAGE (METFORMIN) (NR) [Concomitant]

REACTIONS (1)
  - SUDDEN DEATH [None]
